FAERS Safety Report 8073290-4 (Version None)
Quarter: 2012Q1

REPORT INFORMATION
  Report Type: 
  Country: None (occurrence: None)
  Receive Date: 20120123
  Receipt Date: 20120123
  Transmission Date: 20120608
  Serious: Yes (Hospitalization)
  Sender: FDA-Public Use
  Company Number: None

PATIENT
  Sex: Female
  Weight: 16 kg

DRUGS (9)
  1. MESNA [Suspect]
     Dosage: 670 MG
  2. CISPLATIN [Suspect]
     Dosage: 153 MG
  3. VINCRISTINE SULFATE [Suspect]
     Dosage: 1.53 MG
  4. TOPOTECAN [Suspect]
     Dosage: 6 MG
  5. CARBOPLATIN [Suspect]
     Dosage: 880 MG
  6. ETOPOSIDE [Suspect]
     Dosage: 1172 MG
  7. CYCLOPHOSPHAMIDE [Suspect]
     Dosage: 4760 MG
  8. DOXORUBICIN HCL [Suspect]
     Dosage: 60 MG
  9. MELPHALAN HYDROCHLORIDE [Suspect]
     Dosage: 111 MG

REACTIONS (26)
  - HYPOTENSION [None]
  - HYPERKALAEMIA [None]
  - CARDIAC DISORDER [None]
  - VOMITING [None]
  - LETHARGY [None]
  - FLUID RETENTION [None]
  - SKIN OEDEMA [None]
  - GENERAL PHYSICAL HEALTH DETERIORATION [None]
  - ELECTROLYTE IMBALANCE [None]
  - LIVER DISORDER [None]
  - PSEUDOMONAS TEST POSITIVE [None]
  - PERICARDIAL EFFUSION [None]
  - HYPERCALCAEMIA [None]
  - METABOLIC ACIDOSIS [None]
  - RENAL DISORDER [None]
  - TACHYCARDIA [None]
  - RESPIRATORY DISORDER [None]
  - STEM CELL TRANSPLANT [None]
  - ASCITES [None]
  - PYREXIA [None]
  - ANURIA [None]
  - COAGULOPATHY [None]
  - NAUSEA [None]
  - HYPERPHOSPHATAEMIA [None]
  - MULTI-ORGAN FAILURE [None]
  - LUNG DISORDER [None]
